FAERS Safety Report 9812266 (Version 1)
Quarter: 2014Q1

REPORT INFORMATION
  Report Type: Spontaneous
  Country: US (occurrence: US)
  Receive Date: 20140113
  Receipt Date: 20140113
  Transmission Date: 20141002
  Serious: Yes (Other)
  Sender: FDA-Public Use
  Company Number: US-ROCHE-1331564

PATIENT
  Sex: Male

DRUGS (5)
  1. XOLAIR [Suspect]
     Indication: ASTHMA
     Dosage: INJECTION
     Route: 065
  2. ALVESCO [Concomitant]
     Indication: ASTHMA
     Route: 055
  3. VERAMYST [Concomitant]
     Route: 045
  4. SYMBICORT [Concomitant]
     Indication: ASTHMA
     Route: 055
  5. PROAIR (UNITED STATES) [Concomitant]
     Indication: ASTHMA

REACTIONS (6)
  - Cough [Not Recovered/Not Resolved]
  - Dysphonia [Not Recovered/Not Resolved]
  - Aphonia [Recovering/Resolving]
  - Upper respiratory tract infection [Unknown]
  - Laryngitis [Not Recovered/Not Resolved]
  - Sinusitis [Not Recovered/Not Resolved]
